FAERS Safety Report 7395793-8 (Version None)
Quarter: 2011Q2

REPORT INFORMATION
  Report Type: 
  Country: None (occurrence: None)
  Receive Date: 20110405
  Receipt Date: 20110328
  Transmission Date: 20111010
  Serious: Yes (Hospitalization)
  Sender: FDA-Public Use
  Company Number: TR-MERCK-1103TUR00006

PATIENT
  Age: 42 Year
  Sex: Female

DRUGS (2)
  1. CIPROFLOXACIN [Concomitant]
     Route: 048
  2. PRIMAXIN [Suspect]
     Indication: BRUCELLOSIS
     Route: 041
     Dates: start: 20090403

REACTIONS (3)
  - DRUG INEFFECTIVE [None]
  - MUCOSAL INFLAMMATION [None]
  - BLOOD BILIRUBIN INCREASED [None]
